FAERS Safety Report 18395676 (Version 4)
Quarter: 2025Q2

REPORT INFORMATION
  Report Type: Report from Study
  Country: US (occurrence: US)
  Receive Date: 20201018
  Receipt Date: 20250424
  Transmission Date: 20250717
  Serious: No
  Sender: TAKEDA
  Company Number: US-SHIRE-US202034056

PATIENT
  Sex: Female
  Weight: 54 kg

DRUGS (19)
  1. HUMAN IMMUNOGLOBULIN G [Suspect]
     Active Substance: HUMAN IMMUNOGLOBULIN G
     Indication: Immunodeficiency
     Dosage: 18 GRAM, Q2WEEKS
     Dates: start: 20180914
  2. ACETAMINOPHEN [Concomitant]
     Active Substance: ACETAMINOPHEN
  3. FEXOFENADINE HYDROCHLORIDE [Concomitant]
     Active Substance: FEXOFENADINE HYDROCHLORIDE
  4. VALACYCLOVIR [Concomitant]
     Active Substance: VALACYCLOVIR HYDROCHLORIDE
  5. Coq [Concomitant]
  6. ADVAIR HFA [Concomitant]
     Active Substance: FLUTICASONE PROPIONATE\SALMETEROL XINAFOATE
  7. NEILMED SINUS RINSE [Concomitant]
     Active Substance: SODIUM BICARBONATE\SODIUM CHLORIDE
  8. DIETARY SUPPLEMENT [Concomitant]
     Active Substance: DIETARY SUPPLEMENT
  9. LIDOCAINE [Concomitant]
     Active Substance: LIDOCAINE
  10. PROAIR HFA [Concomitant]
     Active Substance: ALBUTEROL SULFATE
  11. CALCIUM [Concomitant]
     Active Substance: CALCIUM
  12. SPIRONOLACTONE [Concomitant]
     Active Substance: SPIRONOLACTONE
  13. DIPHENHYDRAMINE HYDROCHLORIDE [Concomitant]
     Active Substance: DIPHENHYDRAMINE HYDROCHLORIDE
  14. DIPHENHYDRAMINE [Concomitant]
     Active Substance: DIPHENHYDRAMINE
  15. EPINEPHRINE [Concomitant]
     Active Substance: EPINEPHRINE
  16. COLACE [Concomitant]
     Active Substance: DOCUSATE SODIUM
  17. MAGNESIUM [Concomitant]
     Active Substance: MAGNESIUM
  18. PATANOL [Concomitant]
     Active Substance: OLOPATADINE HYDROCHLORIDE
  19. FASENRA [Concomitant]
     Active Substance: BENRALIZUMAB

REACTIONS (13)
  - Skin infection [Unknown]
  - COVID-19 [Unknown]
  - Nasopharyngitis [Unknown]
  - Eyelid infection [Unknown]
  - Electrocardiogram abnormal [Unknown]
  - Device occlusion [Unknown]
  - Product dose omission issue [Unknown]
  - Inappropriate schedule of product administration [Unknown]
  - Sinusitis [Not Recovered/Not Resolved]
  - Infusion site pruritus [Unknown]
  - Hypersensitivity [Unknown]
  - Infusion site pain [Recovered/Resolved]
  - Infusion site swelling [Unknown]
